FAERS Safety Report 7592861-2 (Version None)
Quarter: 2011Q3

REPORT INFORMATION
  Report Type: 
  Country: None (occurrence: None)
  Receive Date: 20110706
  Receipt Date: 20110701
  Transmission Date: 20111222
  Serious: No
  Sender: FDA-Public Use
  Company Number: US-PFIZER INC-2011147938

PATIENT
  Sex: Female
  Weight: 47.166 kg

DRUGS (1)
  1. TOVIAZ [Suspect]
     Indication: URINARY INCONTINENCE
     Dosage: 4 MG, DAILY
     Dates: start: 20100101, end: 20110630

REACTIONS (5)
  - BACK PAIN [None]
  - HYPERSENSITIVITY [None]
  - FEELING ABNORMAL [None]
  - ORAL DISCOMFORT [None]
  - GLOSSODYNIA [None]
